FAERS Safety Report 13369281 (Version 1)
Quarter: 2017Q1

REPORT INFORMATION
  Report Type: Spontaneous
  Country: US (occurrence: US)
  Receive Date: 20170324
  Receipt Date: 20170324
  Transmission Date: 20170429
  Serious: No
  Sender: FDA-Public Use
  Company Number: US-GLAXOSMITHKLINE-US2017040323

PATIENT
  Age: 21 Year
  Sex: Female

DRUGS (2)
  1. MEPRON [Suspect]
     Active Substance: ATOVAQUONE
     Indication: PRODUCT USED FOR UNKNOWN INDICATION
     Dosage: 5 ML, BID
     Route: 048
     Dates: start: 20170221
  2. PREDNISONE. [Concomitant]
     Active Substance: PREDNISONE

REACTIONS (5)
  - Eye swelling [Recovering/Resolving]
  - Swelling face [Recovering/Resolving]
  - Lip swelling [Recovering/Resolving]
  - Drug hypersensitivity [Recovering/Resolving]
  - Overdose [Unknown]

NARRATIVE: CASE EVENT DATE: 20170224
